FAERS Safety Report 13884756 (Version 2)
Quarter: 2017Q3

REPORT INFORMATION
  Report Type: Spontaneous
  Country: US (occurrence: US)
  Receive Date: 20170821
  Receipt Date: 20170928
  Transmission Date: 20171127
  Serious: No
  Sender: FDA-Public Use
  Company Number: US-ASTRAZENECA-2017SE82804

PATIENT
  Age: 947 Month
  Sex: Female
  Weight: 61.7 kg

DRUGS (5)
  1. SYMBICORT [Suspect]
     Active Substance: BUDESONIDE\FORMOTEROL FUMARATE DIHYDRATE
     Indication: ASTHMA
     Dosage: 80/4.5, TWO PUFFS TWICE DAILY
     Route: 055
     Dates: start: 201706
  2. ALIGN [Concomitant]
     Active Substance: BIFIDOBACTERIUM LONGUM SUBSP. INFANTIS
     Indication: CONSTIPATION
     Dosage: UNKNOWN DOSE DAILY
     Route: 048
     Dates: start: 20170719
  3. PRESSER VISION [Concomitant]
     Indication: MACULAR DEGENERATION
     Dosage: UNKNOWN DOSE TWO TIMES A DAY
     Dates: start: 201707
  4. EFFEXOR [Concomitant]
     Active Substance: VENLAFAXINE HYDROCHLORIDE
     Indication: DEPRESSION
     Route: 048
     Dates: start: 2005
  5. SYMBICORT [Suspect]
     Active Substance: BUDESONIDE\FORMOTEROL FUMARATE DIHYDRATE
     Indication: EMPHYSEMA
     Dosage: 80/4.5, TWO PUFFS TWICE DAILY
     Route: 055
     Dates: start: 201706

REACTIONS (5)
  - Intentional device misuse [Unknown]
  - Constipation [Unknown]
  - Off label use [Unknown]
  - Product use in unapproved indication [Unknown]
  - Device malfunction [Unknown]

NARRATIVE: CASE EVENT DATE: 201707
